FAERS Safety Report 6751556-5 (Version None)
Quarter: 2010Q2

REPORT INFORMATION
  Report Type: 
  Country: None (occurrence: None)
  Receive Date: 20100602
  Receipt Date: 20100523
  Transmission Date: 20101027
  Serious: Yes (Other)
  Sender: FDA-Public Use
  Company Number: A0862265A

PATIENT
  Sex: Female
  Weight: 80 kg

DRUGS (1)
  1. CLINDOXYL [Suspect]
     Indication: ACNE
     Route: 061
     Dates: start: 20091101, end: 20100523

REACTIONS (3)
  - ERYTHEMA [None]
  - OEDEMA [None]
  - UPPER AIRWAY OBSTRUCTION [None]
